FAERS Safety Report 9648010 (Version 2)
Quarter: 2013Q4

REPORT INFORMATION
  Report Type: Spontaneous
  Country: US (occurrence: US)
  Receive Date: 20131028
  Receipt Date: 20131223
  Transmission Date: 20140711
  Serious: Yes (Hospitalization)
  Sender: FDA-Public Use
  Company Number: US-JNJFOC-20131011264

PATIENT
  Sex: Female
  Weight: 56.7 kg

DRUGS (10)
  1. RISPERIDONE [Suspect]
     Indication: BIPOLAR DISORDER
     Route: 048
  2. RISPERIDONE [Suspect]
     Indication: BIPOLAR DISORDER
     Route: 048
     Dates: start: 201003, end: 201203
  3. RISPERIDONE [Suspect]
     Indication: BIPOLAR DISORDER
     Route: 048
  4. RISPERIDONE [Suspect]
     Indication: BIPOLAR DISORDER
     Route: 048
  5. RISPERIDONE [Suspect]
     Indication: BIPOLAR DISORDER
     Route: 048
  6. RISPERDAL [Suspect]
     Indication: BIPOLAR DISORDER
     Route: 048
  7. RISPERDAL [Suspect]
     Indication: BIPOLAR DISORDER
     Route: 048
     Dates: start: 201003, end: 201203
  8. RISPERDAL [Suspect]
     Indication: BIPOLAR DISORDER
     Route: 048
  9. RISPERDAL [Suspect]
     Indication: BIPOLAR DISORDER
     Route: 048
  10. RISPERDAL [Suspect]
     Indication: BIPOLAR DISORDER
     Route: 048

REACTIONS (7)
  - Mania [Recovered/Resolved]
  - Eye pain [Recovered/Resolved]
  - Depression [Recovered/Resolved]
  - Arthritis [Recovered/Resolved]
  - Fibromyalgia [Recovered/Resolved]
  - Weight decreased [Recovered/Resolved]
  - Hallucination [Recovered/Resolved]
